FAERS Safety Report 17159341 (Version 1)
Quarter: 2019Q4

REPORT INFORMATION
  Report Type: Spontaneous
  Country: US (occurrence: US)
  Receive Date: 20191215
  Receipt Date: 20191215
  Transmission Date: 20200122
  Serious: Yes (Hospitalization)
  Sender: FDA-Public Use
  Company Number: None

PATIENT
  Age: 82 Year
  Sex: Female
  Weight: 49 kg

DRUGS (9)
  1. APIXABAN [Suspect]
     Active Substance: APIXABAN
     Indication: ATRIAL FIBRILLATION
     Route: 048
     Dates: start: 20140815
  2. LEVOTHYROXINE 150MCG DAILY [Concomitant]
  3. PANTOPRAZOLE 40MG DAILY [Concomitant]
  4. AMIODARONE 400MG DAILY [Concomitant]
  5. SERTRALINE 25MG DAILY [Concomitant]
  6. PRAVASTATIN 40MG DAILY [Concomitant]
  7. ASPIRIN. [Suspect]
     Active Substance: ASPIRIN
     Route: 048
     Dates: start: 20121128
  8. FUROSEMIDE 40MG BID [Concomitant]
  9. RIVASTIGMINE 9.5MG/24HR PATCH DAILY [Concomitant]

REACTIONS (6)
  - Lethargy [None]
  - Contusion [None]
  - Fall [None]
  - Dementia [None]
  - Confusional state [None]
  - Swelling face [None]

NARRATIVE: CASE EVENT DATE: 20150212
